FAERS Safety Report 5612239-8 (Version None)
Quarter: 2008Q1

REPORT INFORMATION
  Report Type: 
  Country: None (occurrence: None)
  Receive Date: 20080131
  Receipt Date: 20080131
  Transmission Date: 20080703
  Serious: Yes (Disabling)
  Sender: FDA-Public Use
  Company Number: None

PATIENT
  Age: 41 Year
  Sex: Male
  Weight: 77.1115 kg

DRUGS (4)
  1. AVELOX [Suspect]
     Indication: SINUS OPERATION
     Dosage: 10 1 A DAY PO
     Route: 048
     Dates: start: 20061219, end: 20061229
  2. LEVAQUIN [Suspect]
     Indication: VASECTOMY
     Dosage: 14 1 A DAY PO
     Route: 048
     Dates: start: 20070114, end: 20070128
  3. DORASAL NIGHT SPINT [Concomitant]
  4. DARCO BODY ARMOR WALKER 2 [Concomitant]

REACTIONS (6)
  - BURNING SENSATION [None]
  - ILL-DEFINED DISORDER [None]
  - MUSCLE SPASMS [None]
  - TENDON RUPTURE [None]
  - TENDONITIS [None]
  - VASECTOMY [None]
